FAERS Safety Report 5957692-5 (Version None)
Quarter: 2008Q4

REPORT INFORMATION
  Report Type: 
  Country: None (occurrence: None)
  Receive Date: 20081119
  Receipt Date: 20081111
  Transmission Date: 20090506
  Serious: Yes (Other)
  Sender: FDA-Public Use
  Company Number: KR-JNJFOC-20081102578

PATIENT
  Age: 57 Year
  Sex: Female

DRUGS (5)
  1. TYLENOL (CAPLET) [Suspect]
     Route: 048
  2. TYLENOL (CAPLET) [Suspect]
     Indication: MIGRAINE
     Route: 048
  3. TYLENOL COLD S [Suspect]
     Indication: MIGRAINE
     Route: 048
  4. MULTI-VITAMIN [Concomitant]
  5. FOSAMAX [Concomitant]
     Indication: OSTEOPOROSIS PROPHYLAXIS

REACTIONS (2)
  - DRUG INEFFECTIVE [None]
  - NEPHROTIC SYNDROME [None]
